FAERS Safety Report 7184969-0 (Version None)
Quarter: 2010Q4

REPORT INFORMATION
  Report Type: 
  Country: None (occurrence: None)
  Receive Date: 20101222
  Receipt Date: 20101215
  Transmission Date: 20110411
  Serious: Yes (Death, Hospitalization, Other)
  Sender: FDA-Public Use
  Company Number: US-MERCK-1012USA02426

PATIENT
  Age: 73 Year
  Sex: Male

DRUGS (13)
  1. DECADRON [Suspect]
     Route: 048
     Dates: start: 20090303, end: 20100201
  2. DECADRON [Suspect]
     Route: 065
  3. REVLIMID [Concomitant]
     Indication: MULTIPLE MYELOMA
     Route: 048
     Dates: start: 20081001, end: 20090801
  4. REVLIMID [Concomitant]
     Route: 048
     Dates: start: 20091201, end: 20100101
  5. NOVOLIN R [Concomitant]
     Route: 065
  6. WARFARIN [Concomitant]
     Route: 065
  7. HYDROCHLOROTHIAZIDE [Concomitant]
     Route: 065
  8. VICODIN [Concomitant]
     Route: 065
  9. GABAPENTIN [Concomitant]
     Route: 065
  10. LEVOTHYROXINE SODIUM [Concomitant]
     Route: 065
  11. ACTOS [Concomitant]
     Route: 065
  12. VELCADE [Concomitant]
     Indication: MULTIPLE MYELOMA
     Route: 065
  13. NOVOLIN N [Concomitant]
     Route: 065

REACTIONS (5)
  - BLOOD GLUCOSE INCREASED [None]
  - BLOOD PRESSURE DECREASED [None]
  - DEATH [None]
  - FATIGUE [None]
  - HEPATIC NEOPLASM MALIGNANT [None]
